FAERS Safety Report 8560015-9 (Version None)
Quarter: 2012Q3

REPORT INFORMATION
  Report Type: 
  Country: None (occurrence: None)
  Receive Date: 20120802
  Receipt Date: 20120730
  Transmission Date: 20120928
  Serious: Yes (Death)
  Sender: FDA-Public Use
  Company Number: FR-ASTRAZENECA-2012SE53812

PATIENT
  Age: 43 Year
  Sex: Male

DRUGS (6)
  1. BACLOFEN [Suspect]
     Route: 048
  2. SEROQUEL [Suspect]
     Route: 048
     Dates: start: 20111201
  3. XANAX [Concomitant]
     Route: 048
  4. BACLOFEN [Suspect]
     Route: 048
     Dates: start: 20100401
  5. BUPRENORPHIN [Concomitant]
     Route: 048
  6. VALDOXAN [Suspect]
     Route: 048
     Dates: start: 20111201

REACTIONS (4)
  - CONDITION AGGRAVATED [None]
  - ANXIETY [None]
  - COMPLETED SUICIDE [None]
  - DEPRESSION [None]
